FAERS Safety Report 20769564 (Version 1)
Quarter: 2022Q2

REPORT INFORMATION
  Report Type: Spontaneous
  Country: US (occurrence: None)
  Receive Date: 20220429
  Receipt Date: 20220429
  Transmission Date: 20220721
  Serious: Yes (Other)
  Sender: FDA-Public Use
  Company Number: None

PATIENT
  Age: 62 Year
  Sex: Female

DRUGS (7)
  1. GADOLINIUM [Suspect]
     Active Substance: GADOLINIUM
     Indication: Scan with contrast
     Dosage: OTHER FREQUENCY : YEARLY;?
  2. CALRITIN [Concomitant]
  3. CHLOROHYDROTHIOZIDE [Concomitant]
  4. CANNABIDIOL [Concomitant]
     Active Substance: CANNABIDIOL
  5. VITAMIN D NOS [Concomitant]
     Active Substance: VITAMIN D NOS
  6. CAL. MAG [Concomitant]
  7. EMRGENC [Concomitant]

REACTIONS (6)
  - Body temperature increased [None]
  - Erythema [None]
  - Pruritus [None]
  - Headache [None]
  - Palpitations [None]
  - Contrast media reaction [None]

NARRATIVE: CASE EVENT DATE: 20220428
